FAERS Safety Report 5565420-0 (Version None)
Quarter: 2007Q4

REPORT INFORMATION
  Report Type: 
  Country: None (occurrence: None)
  Receive Date: 20071218
  Receipt Date: 20071206
  Transmission Date: 20080405
  Serious: Yes (Hospitalization)
  Sender: FDA-Public Use
  Company Number: DE-PFIZER INC-2007104155

PATIENT
  Sex: Male

DRUGS (1)
  1. REACTINE DUO [Suspect]
     Route: 048
     Dates: start: 20071205, end: 20071205

REACTIONS (2)
  - ACCIDENTAL EXPOSURE [None]
  - NO ADVERSE REACTION [None]
